FAERS Safety Report 15151383 (Version 7)
Quarter: 2019Q2

REPORT INFORMATION
  Report Type: Spontaneous
  Country: US (occurrence: US)
  Receive Date: 20180716
  Receipt Date: 20190627
  Transmission Date: 20190711
  Serious: Yes (Hospitalization, Disabling, Congenital Anomaly)
  Sender: FDA-Public Use
  Company Number: US-ACTELION-A-NJ2018-175339

PATIENT
  Sex: Male
  Weight: 10.43 kg

DRUGS (13)
  1. ENALAPRIL [Suspect]
     Active Substance: ENALAPRIL
     Indication: PRODUCT USED FOR UNKNOWN INDICATION
     Dosage: 1 MG, BID
     Route: 065
     Dates: start: 2018, end: 20190517
  2. ASPIRIN. [Concomitant]
     Active Substance: ASPIRIN
     Dosage: 40.5 MG, QD
  3. LANSOPRAZOLE. [Concomitant]
     Active Substance: LANSOPRAZOLE
     Dosage: 7.5 MG, BID
  4. RANITIDINE. [Concomitant]
     Active Substance: RANITIDINE
     Dosage: 1.4 ML, BID
  5. ALDACTONE [Concomitant]
     Active Substance: SPIRONOLACTONE
     Dosage: 2MG/KG/DAY
  6. CLONIDINE. [Concomitant]
     Active Substance: CLONIDINE
  7. FUROSEMIDE. [Concomitant]
     Active Substance: FUROSEMIDE
     Dosage: 15 MG
  8. AMOXICILLIN. [Concomitant]
     Active Substance: AMOXICILLIN
     Dosage: 200 MG, QD
  9. KCL [Concomitant]
     Active Substance: POTASSIUM CHLORIDE
     Dosage: 20 MEQ, Q8H
  10. TRACLEER [Suspect]
     Active Substance: BOSENTAN
     Indication: PULMONARY HYPERTENSION
     Dosage: 31.25 MG, BID
     Route: 048
  11. REVATIO [Concomitant]
     Active Substance: SILDENAFIL CITRATE
     Dosage: 10 MG, Q6HRS
  12. TRACLEER [Suspect]
     Active Substance: BOSENTAN
     Dosage: 20 MG VIA G-TUBE Q12HR
     Route: 048
  13. LASIX [Concomitant]
     Active Substance: FUROSEMIDE
     Dosage: 18 MG, Q6HRS

REACTIONS (8)
  - Hospitalisation [Unknown]
  - Respiratory distress [Recovering/Resolving]
  - Fluid retention [Unknown]
  - Aortic stenosis [Unknown]
  - Oxygen saturation decreased [Unknown]
  - Renal injury [Unknown]
  - Acute kidney injury [Recovered/Resolved]
  - Dyspnoea [Unknown]
